FAERS Safety Report 5796917-6 (Version None)
Quarter: 2008Q2

REPORT INFORMATION
  Report Type: 
  Country: None (occurrence: None)
  Receive Date: 20080618
  Receipt Date: 20071011
  Transmission Date: 20081010
  Serious: Yes (Life-Threatening, Other)
  Sender: FDA-Public Use
  Company Number: 200713145US

PATIENT
  Age: 34 Year
  Sex: Female
  Weight: 57 kg

DRUGS (4)
  1. LANTUS [Suspect]
     Dosage: 1000 U ONCE SC
     Route: 058
     Dates: start: 20070428
  2. LUNESTA [Suspect]
     Dosage: 6 MG
  3. DULOXETINE HYDROCHLORIDE (CYMBALTA) [Concomitant]
  4. ACYCLOVIR [Concomitant]

REACTIONS (5)
  - AKINESIA [None]
  - BLOOD GLUCOSE DECREASED [None]
  - INTENTIONAL OVERDOSE [None]
  - LOSS OF CONSCIOUSNESS [None]
  - SOMNOLENCE [None]
